FAERS Safety Report 8795463 (Version 1)
Quarter: 2012Q4

REPORT INFORMATION
  Report Type: 
  Country: US (occurrence: US)
  Receive Date: 20120917
  Receipt Date: 20120917
  Transmission Date: 20130627
  Serious: Yes (Other)
  Sender: FDA-Public Use
  Company Number: US-ROCHE-1112185

PATIENT
  Sex: Male

DRUGS (1)
  1. RITUXAN [Suspect]
     Indication: WEGENER^S GRANULOMATOSIS

REACTIONS (4)
  - Renal impairment [Unknown]
  - Syncope [Unknown]
  - Blood glucose increased [Unknown]
  - Dyspnoea [Unknown]
